FAERS Safety Report 7756591-6 (Version None)
Quarter: 2011Q3

REPORT INFORMATION
  Report Type: 
  Country: None (occurrence: None)
  Receive Date: 20110916
  Receipt Date: 20110906
  Transmission Date: 20111222
  Serious: Yes (Hospitalization, Other)
  Sender: FDA-Public Use
  Company Number: PHHY2011FR80119

PATIENT
  Sex: Male

DRUGS (4)
  1. EXJADE [Suspect]
     Dosage: 20 MG/KG, UNK
     Dates: start: 20090801
  2. EXJADE [Suspect]
     Dosage: 1000 MG,DAILY
  3. EXJADE [Suspect]
     Dosage: 1500 MG, DAILY
     Dates: start: 20100721
  4. EXJADE [Suspect]
     Dosage: 1250 MG, DAILY

REACTIONS (20)
  - BILE DUCT STENOSIS [None]
  - PYREXIA [None]
  - BLOOD CREATININE INCREASED [None]
  - HEPATIC FIBROSIS [None]
  - JAUNDICE [None]
  - CHOLANGITIS SCLEROSING [None]
  - PHOTOPHOBIA [None]
  - ASTHENIA [None]
  - HAEMATEMESIS [None]
  - IRON OVERLOAD [None]
  - MELAENA [None]
  - HAEMORRHAGE [None]
  - HAEMOGLOBIN DECREASED [None]
  - WEIGHT DECREASED [None]
  - BLOOD BILIRUBIN INCREASED [None]
  - RENAL FAILURE [None]
  - CHOLESTASIS [None]
  - BILE DUCT STONE [None]
  - DECREASED APPETITE [None]
  - HEADACHE [None]
